FAERS Safety Report 4494373-1 (Version None)
Quarter: 2004Q4

REPORT INFORMATION
  Report Type: 
  Country: None (occurrence: None)
  Receive Date: 20041104
  Receipt Date: 20041104
  Transmission Date: 20050328
  Serious: Yes (Hospitalization, Other)
  Sender: FDA-Public Use
  Company Number: None

PATIENT
  Age: 19 Year
  Sex: Male
  Weight: 81.6475 kg

DRUGS (3)
  1. ISOTRETINOIN [Suspect]
     Indication: ACNE
     Dosage: 1 PILLS TWICE DAILY
     Dates: start: 20030615, end: 20030908
  2. ISOTRETINOIN, BERTEK , 40 MG [Suspect]
     Dosage: 2 PILLS TWICE DAILY
     Dates: start: 20030908, end: 20031026
  3. CORTICOSTEROIDS [Concomitant]

REACTIONS (13)
  - ACNE [None]
  - ACQUIRED NIGHT BLINDNESS [None]
  - ALOPECIA [None]
  - ASTHMA [None]
  - CHEILITIS [None]
  - CONDITION AGGRAVATED [None]
  - DRY EYE [None]
  - DRY SKIN [None]
  - NASAL DRYNESS [None]
  - NASAL MUCOSA ATROPHY [None]
  - PHOTOSENSITIVITY REACTION [None]
  - PSORIASIS [None]
  - SUICIDAL IDEATION [None]
